FAERS Safety Report 7505953-0 (Version None)
Quarter: 2011Q2

REPORT INFORMATION
  Report Type: 
  Country: None (occurrence: None)
  Receive Date: 20110411
  Receipt Date: 20100716
  Transmission Date: 20111010
  Serious: Yes (Hospitalization)
  Sender: FDA-Public Use
  Company Number: AE 2010-070

PATIENT
  Age: 19 Year
  Sex: Male
  Weight: 144.6975 kg

DRUGS (3)
  1. DEPAKOTE ER [Concomitant]
  2. ^ANTIBIOTICS^ [Concomitant]
  3. FAZACLO ODT [Suspect]
     Indication: SCHIZOPHRENIA
     Dosage: 300MG DAILY PO
     Route: 048
     Dates: start: 20080328, end: 20100401

REACTIONS (2)
  - LEUKOPENIA [None]
  - AGRANULOCYTOSIS [None]
